FAERS Safety Report 13091021 (Version 2)
Quarter: 2017Q2

REPORT INFORMATION
  Report Type: Spontaneous
  Country: IN (occurrence: IN)
  Receive Date: 20170106
  Receipt Date: 20170419
  Transmission Date: 20170830
  Serious: Yes (Other)
  Sender: FDA-Public Use
  Company Number: IN-ACCORD-047032

PATIENT
  Age: 7 Year
  Sex: Male

DRUGS (8)
  1. GLUCOSE [Concomitant]
     Active Substance: DEXTROSE
     Dosage: STRENGTH: 5%
  2. PREDNISOLONE. [Concomitant]
     Active Substance: PREDNISOLONE
     Route: 048
  3. METHOTREXATE. [Suspect]
     Active Substance: METHOTREXATE
     Indication: PRODUCT USED FOR UNKNOWN INDICATION
     Dosage: 5 G/M2?OVER A PERIOD OF 24 H, EVERY 3 HOURLY IN 5% DEXTROSE (240 ML)
  4. SULFAMETHOXAZOLE/TRIMETHOPRIM [Concomitant]
     Indication: PNEUMOCYSTIS JIROVECII INFECTION
     Route: 048
  5. VINCRISTINE [Concomitant]
     Active Substance: VINCRISTINE
     Route: 042
  6. ASPARAGINASE [Concomitant]
     Active Substance: ASPARAGINASE
     Dosage: 10,000 UNITS/M2 FOR 5 WEEKS
     Route: 030
  7. MERCAPTOPURINE/MERCAPTOPURINE ANHYDROUS [Concomitant]
  8. FOLINIC ACID [Concomitant]
     Active Substance: LEUCOVORIN
     Dosage: RESCUE WAS GIVEN THE NEXT DAY EVERY 6 HOURLY AS PER THE PROTOCOL

REACTIONS (14)
  - Generalised erythema [Recovering/Resolving]
  - Dermatitis bullous [Unknown]
  - Pyrexia [Unknown]
  - Tachycardia [Unknown]
  - Blister [Recovering/Resolving]
  - Oral mucosa erosion [Unknown]
  - Lymphadenopathy [Unknown]
  - Hypotension [Unknown]
  - Palmar-plantar erythrodysaesthesia syndrome [Unknown]
  - Blood count abnormal [Recovering/Resolving]
  - Renal impairment [Recovering/Resolving]
  - Face oedema [Unknown]
  - Liver function test abnormal [Recovering/Resolving]
  - Irritability [Unknown]
